FAERS Safety Report 8961508 (Version 1)
Quarter: 2012Q4

REPORT INFORMATION
  Report Type: 
  Country: US (occurrence: US)
  Receive Date: 20121212
  Receipt Date: 20121212
  Transmission Date: 20130627
  Serious: No
  Sender: FDA-Public Use
  Company Number: US-MYLANLABS-2012S1023792

PATIENT
  Age: 65 Year
  Sex: Male
  Weight: 74.84 kg

DRUGS (6)
  1. ATORVASTATIN [Suspect]
     Indication: BLOOD CHOLESTEROL INCREASED
     Route: 048
     Dates: start: 201207
  2. VENLAFAXINE [Concomitant]
     Indication: ANXIETY
     Route: 048
  3. ASA [Concomitant]
     Route: 048
  4. MULTIVITAMIN [Concomitant]
     Route: 048
  5. OMEGA 3 /00931501/ [Concomitant]
     Route: 048
  6. LUTEIN /01638501/ [Concomitant]
     Route: 048

REACTIONS (1)
  - Flatulence [Not Recovered/Not Resolved]
